FAERS Safety Report 5514992-0 (Version None)
Quarter: 2007Q4

REPORT INFORMATION
  Report Type: 
  Country: None (occurrence: None)
  Receive Date: 20071113
  Receipt Date: 20061106
  Transmission Date: 20080405
  Serious: No
  Sender: FDA-Public Use
  Company Number: A0626352A

PATIENT
  Sex: Female

DRUGS (6)
  1. COREG [Suspect]
     Route: 048
  2. ALTACE [Concomitant]
  3. LANOXIN [Concomitant]
  4. PLAVIX [Concomitant]
  5. TRICOR [Concomitant]
  6. AVANDIA [Concomitant]

REACTIONS (2)
  - BLOOD GLUCOSE INCREASED [None]
  - BLOOD TRIGLYCERIDES INCREASED [None]
